FAERS Safety Report 15262610 (Version 1)
Quarter: 2018Q3

REPORT INFORMATION
  Report Type: Report from Study
  Country: DE (occurrence: DE)
  Receive Date: 20180809
  Receipt Date: 20180809
  Transmission Date: 20181010
  Serious: Yes (Life-Threatening, Hospitalization, Other)
  Sender: FDA-Public Use
  Company Number: DE-TEVA-2018-DE-937672

PATIENT
  Age: 73 Year
  Sex: Female
  Weight: 63 kg

DRUGS (18)
  1. EPIRUBICIN [Suspect]
     Active Substance: EPIRUBICIN
     Indication: BREAST CANCER
     Route: 042
     Dates: start: 20171117
  2. JOHANNISKRAUT [Concomitant]
     Dosage: 900 MG, UNK
     Route: 065
     Dates: start: 20170817
  3. PACLITAXEL. [Suspect]
     Active Substance: PACLITAXEL
     Indication: BREAST CANCER
     Dosage: 212 MG, UNK
     Route: 042
     Dates: start: 20170810
  4. CYCLOPHOSPHAMID [Suspect]
     Active Substance: CYCLOPHOSPHAMIDE
     Indication: BREAST CANCER
     Route: 042
     Dates: start: 20171214, end: 20171220
  5. ASPIRIN. [Concomitant]
     Active Substance: ASPIRIN
     Dosage: 100 MG, UNK
     Route: 065
     Dates: start: 201703
  6. CLONAZEPAM. [Concomitant]
     Active Substance: CLONAZEPAM
     Dosage: 0.5 MG, UNK
     Route: 065
  7. L?THYROXIN [Concomitant]
     Active Substance: LEVOTHYROXINE SODIUM
     Dosage: 75/150
     Route: 065
     Dates: start: 2012
  8. EPIRUBICIN [Suspect]
     Active Substance: EPIRUBICIN
     Dosage: 5.7143 MILLIGRAM DAILY;
     Route: 042
     Dates: start: 20171214, end: 20171220
  9. CARBOPLATIN. [Suspect]
     Active Substance: CARBOPLATIN
     Indication: BREAST CANCER
     Route: 042
     Dates: start: 20170810
  10. CYCLOPHOSPHAMID [Suspect]
     Active Substance: CYCLOPHOSPHAMIDE
     Dosage: 38.0952 MILLIGRAM DAILY;
     Route: 042
     Dates: start: 20171117
  11. DENOSUMAB [Suspect]
     Active Substance: DENOSUMAB
     Indication: BREAST CANCER
     Dosage: 4.2857 MILLIGRAM DAILY;
     Route: 058
     Dates: start: 20170810, end: 20171211
  12. SALBUTAMOL [Concomitant]
     Active Substance: ALBUTEROL
     Dosage: 2 HUB B.BEDARF
     Route: 065
  13. FOSTER (PIROXICAM) [Concomitant]
     Active Substance: PIROXICAM
     Dosage: 100/6
     Route: 065
     Dates: start: 2000
  14. METOPROLOL. [Concomitant]
     Active Substance: METOPROLOL
     Dosage: 47.5 MG, UNK
     Route: 065
     Dates: start: 20171101
  15. CIRCADIN [Concomitant]
     Active Substance: MELATONIN
     Dosage: 2 MG, UNK
     Route: 065
  16. NEULASTA SOLUTION FOR INJECTION IN PRE?FILLED SYRINGE [Concomitant]
     Dosage: 6 MG, UNK
     Dates: start: 20171215
  17. IBUPROFEN. [Concomitant]
     Active Substance: IBUPROFEN
     Dosage: 600 MG, B.BEDARF
     Route: 065
  18. ATORVASTATIN [Concomitant]
     Active Substance: ATORVASTATIN
     Dosage: 20 MG, UNK
     Route: 065

REACTIONS (2)
  - Febrile neutropenia [Recovered/Resolved]
  - Pancytopenia [Recovered/Resolved]

NARRATIVE: CASE EVENT DATE: 20171223
